FAERS Safety Report 7335955-9 (Version None)
Quarter: 2011Q1

REPORT INFORMATION
  Report Type: 
  Country: None (occurrence: None)
  Receive Date: 20110228
  Receipt Date: 20110221
  Transmission Date: 20110831
  Serious: Yes (Hospitalization)
  Sender: FDA-Public Use
  Company Number: 2010SP057552

PATIENT
  Age: 70 Year
  Sex: Male
  Weight: 63 kg

DRUGS (13)
  1. CEFAMEZIN (CEFAZOLIN SODIUM) [Suspect]
     Indication: INFECTION PROPHYLAXIS
     Dosage: 1 GM; BID; INDRP
     Route: 041
     Dates: start: 20101020, end: 20101023
  2. PENTAZOCINE LACTATE [Concomitant]
  3. LANTUS [Concomitant]
  4. DIGILANOGEN (DESLANOSIDE) (DESLANOSIDE) [Suspect]
     Indication: ATRIAL FIBRILLATION
     Dosage: 0.4 MG; ; INDRP
     Route: 041
     Dates: start: 20101021, end: 20101023
  5. BISOLVON [Concomitant]
  6. ATROPINE SULFATE [Concomitant]
  7. SEIBULE [Concomitant]
  8. WARFARIN SODIUM [Concomitant]
  9. ESLAX (ROCURONIUM BROMIDE /01245702/) [Suspect]
     Indication: NEUROMUSCULAR BLOCKING THERAPY
     Dosage: 10 MG; ; IV
     Route: 042
     Dates: start: 20101020
  10. BRIDION (SUGAMMADEX /00000000/) [Suspect]
     Indication: NEUROMUSCULAR BLOCKADE REVERSAL
     Dosage: 200 MG; ; IV
     Route: 042
     Dates: start: 20101020
  11. ATARAX [Concomitant]
  12. PENTAZOCINE LACTATE [Concomitant]
  13. HEPARIN SODIUM [Suspect]
     Indication: INFECTION PROPHYLAXIS
     Dosage: 5000 IU; ; INDRP
     Route: 041
     Dates: start: 20101020, end: 20101023

REACTIONS (3)
  - BLOOD BILIRUBIN INCREASED [None]
  - ATRIAL FIBRILLATION [None]
  - JAUNDICE [None]
